FAERS Safety Report 8563898-1 (Version None)
Quarter: 2012Q3

REPORT INFORMATION
  Report Type: 
  Country: None (occurrence: None)
  Receive Date: 20120727
  Receipt Date: 20120727
  Transmission Date: 20120928
  Serious: Yes (Other)
  Sender: FDA-Public Use
  Company Number: None

PATIENT
  Age: 41 Year
  Sex: Female
  Weight: 86.1834 kg

DRUGS (2)
  1. DEXFERRUM [Suspect]
  2. DEXFERRUM [Suspect]
     Indication: ANAEMIA
     Dosage: 25MG  ONE TIME IV
     Route: 042
     Dates: start: 20120628, end: 20120724

REACTIONS (1)
  - URTICARIA [None]
